FAERS Safety Report 7828861-4 (Version None)
Quarter: 2011Q4

REPORT INFORMATION
  Report Type: 
  Country: None (occurrence: None)
  Receive Date: 20111020
  Receipt Date: 20111014
  Transmission Date: 20120403
  Serious: Yes (Other)
  Sender: FDA-Public Use
  Company Number: CHPA2011US14163

PATIENT
  Age: 55 Year
  Sex: Male

DRUGS (5)
  1. BIOFREEZE                          /00482701/ [Suspect]
     Dosage: UNK, UNK
  2. VOLTAREN [Suspect]
     Dosage: 4 G, BID
     Route: 061
     Dates: start: 20080101
  3. TRAMADOL HCL [Suspect]
     Indication: ARTHRALGIA
     Dosage: UNK, UNK
     Route: 048
  4. VOLTAREN [Suspect]
     Indication: PAIN
     Dosage: 2 G, BID
     Route: 061
  5. VOLTAREN [Suspect]
     Dosage: UNK, UNK
     Route: 061
     Dates: start: 20010101, end: 20010101

REACTIONS (6)
  - HEART RATE INCREASED [None]
  - UNDERDOSE [None]
  - THERAPEUTIC RESPONSE UNEXPECTED [None]
  - OFF LABEL USE [None]
  - DRUG ADMINISTERED AT INAPPROPRIATE SITE [None]
  - KNEE OPERATION [None]
